FAERS Safety Report 10919372 (Version 1)
Quarter: 2015Q1

REPORT INFORMATION
  Report Type: Spontaneous
  Country: DE (occurrence: DE)
  Receive Date: 20150316
  Receipt Date: 20150316
  Transmission Date: 20150721
  Serious: Yes (Hospitalization)
  Sender: FDA-Public Use
  Company Number: GXKR2015DE001506

PATIENT
  Sex: Female

DRUGS (1)
  1. QUETIAPIN HEXAL 25 MG FILMTABLETTEN [Suspect]
     Active Substance: QUETIAPINE
     Indication: PSYCHOTIC DISORDER
     Route: 048

REACTIONS (6)
  - Hypoaesthesia [Unknown]
  - Palpitations [Unknown]
  - Tachycardia [Unknown]
  - Tremor [Unknown]
  - Product substitution issue [Unknown]
  - Chest discomfort [Unknown]
